FAERS Safety Report 14342964 (Version 1)
Quarter: 2017Q4

REPORT INFORMATION
  Report Type: Spontaneous
  Country: US (occurrence: US)
  Receive Date: 20171229
  Receipt Date: 20171229
  Transmission Date: 20180321
  Serious: Yes (Hospitalization)
  Sender: FDA-Public Use
  Company Number: None

PATIENT
  Age: 80 Year
  Sex: Female
  Weight: 54.18 kg

DRUGS (2)
  1. AZACTAM [Concomitant]
     Active Substance: AZTREONAM
  2. GAMMAGARD [Suspect]
     Active Substance: HUMAN IMMUNOGLOBULIN G
     Indication: HYPOGAMMAGLOBULINAEMIA
     Dates: start: 20171219, end: 20171219

REACTIONS (3)
  - Rash [None]
  - Hypersensitivity [None]
  - Pyrexia [None]

NARRATIVE: CASE EVENT DATE: 20171219
